FAERS Safety Report 24723991 (Version 1)
Quarter: 2024Q4

REPORT INFORMATION
  Report Type: Report from Study
  Country: CA (occurrence: CA)
  Receive Date: 20241211
  Receipt Date: 20241211
  Transmission Date: 20250115
  Serious: Yes (Other)
  Sender: ABBVIE
  Company Number: CA-ABBVIE-6039393

PATIENT
  Sex: Female

DRUGS (1)
  1. SKYRIZI [Suspect]
     Active Substance: RISANKIZUMAB-RZAA
     Indication: Crohn^s disease
     Route: 058
     Dates: start: 20240605

REACTIONS (6)
  - Macular degeneration [Unknown]
  - Diverticulitis [Unknown]
  - Nausea [Unknown]
  - Dyschezia [Unknown]
  - Vomiting [Unknown]
  - Blood potassium abnormal [Unknown]

NARRATIVE: CASE EVENT DATE: 20240101
